FAERS Safety Report 16901944 (Version 1)
Quarter: 2019Q4

REPORT INFORMATION
  Report Type: Spontaneous
  Country: GB (occurrence: GB)
  Receive Date: 20191010
  Receipt Date: 20191010
  Transmission Date: 20200122
  Serious: Yes (Other)
  Sender: FDA-Public Use
  Company Number: GB-ROCHE-2359301

PATIENT
  Age: 62 Year
  Sex: Female

DRUGS (3)
  1. MYCOPHENOLATE MOFETIL. [Suspect]
     Active Substance: MYCOPHENOLATE MOFETIL
     Indication: GRAFT VERSUS HOST DISEASE
     Route: 065
  2. NICOTINAMIDE [Concomitant]
     Active Substance: NIACINAMIDE
  3. LYMECYCLINE [Suspect]
     Active Substance: LYMECYCLINE
     Indication: GRAFT VERSUS HOST DISEASE
     Route: 048

REACTIONS (4)
  - Chronic graft versus host disease in skin [Recovering/Resolving]
  - Chronic graft versus host disease in liver [Recovering/Resolving]
  - Chronic graft versus host disease [Recovering/Resolving]
  - Off label use [Unknown]
